FAERS Safety Report 8306021-0 (Version None)
Quarter: 2012Q2

REPORT INFORMATION
  Report Type: 
  Country: None (occurrence: None)
  Receive Date: 20120423
  Receipt Date: 20120416
  Transmission Date: 20120825
  Serious: Yes (Death, Hospitalization, Other)
  Sender: FDA-Public Use
  Company Number: US-TEVA-333839USA

PATIENT
  Age: 49 Year
  Sex: Female

DRUGS (1)
  1. METHOTREXATE [Suspect]
     Indication: PSORIASIS
     Dosage: 10 MG/WEEK
     Route: 048

REACTIONS (14)
  - LYMPH NODE PALPABLE [None]
  - FATIGUE [None]
  - HYPOXIA [None]
  - LUNG INFILTRATION [None]
  - DISSEMINATED INTRAVASCULAR COAGULATION [None]
  - HYPERAEMIA [None]
  - RENAL FAILURE ACUTE [None]
  - NEUTROPHILIA [None]
  - PYREXIA [None]
  - ADULT T-CELL LYMPHOMA/LEUKAEMIA [None]
  - HEPATIC FUNCTION ABNORMAL [None]
  - MALAISE [None]
  - RESPIRATORY DISTRESS [None]
  - OROPHARYNGEAL PAIN [None]
